FAERS Safety Report 10755067 (Version 1)
Quarter: 2015Q1

REPORT INFORMATION
  Report Type: Spontaneous
  Country: US (occurrence: None)
  Receive Date: 20150130
  Receipt Date: 20150130
  Transmission Date: 20150721
  Serious: No
  Sender: FDA-Public Use
  Company Number: None

PATIENT
  Age: 40 Year
  Sex: Female
  Weight: 56.7 kg

DRUGS (2)
  1. LEVOCETIRIZINE 5 MG GLENMARK GENERICS [Suspect]
     Active Substance: LEVOCETIRIZINE
     Indication: MULTIPLE ALLERGIES
     Dosage: 1 TABLET
     Route: 048
     Dates: start: 20150101, end: 20150115
  2. LEVOCETIRIZINE 5 MG GLENMARK GENERICS [Suspect]
     Active Substance: LEVOCETIRIZINE
     Indication: SEASONAL ALLERGY
     Dosage: 1 TABLET
     Route: 048
     Dates: start: 20150101, end: 20150115

REACTIONS (3)
  - Urinary retention [None]
  - Urine flow decreased [None]
  - Dysuria [None]

NARRATIVE: CASE EVENT DATE: 20150114
